FAERS Safety Report 8236675-9 (Version None)
Quarter: 2012Q1

REPORT INFORMATION
  Report Type: 
  Country: None (occurrence: None)
  Receive Date: 20120326
  Receipt Date: 20120326
  Transmission Date: 20120608
  Serious: No
  Sender: FDA-Public Use
  Company Number: None

PATIENT
  Age: 70 Year
  Sex: Male
  Weight: 113.3993 kg

DRUGS (2)
  1. OXYBUTYNIN ER 10 MG TAB UDL [Suspect]
     Indication: BLADDER DISORDER
     Dosage: 1 PILL A DAY AM FEB 1ST 2ND 3RD 4TH 5TH
     Dates: start: 20120201, end: 20120205
  2. OXYBUTYNIN ER 10 MG TAB UDL [Suspect]
     Indication: URINARY INCONTINENCE
     Dosage: 1 PILL A DAY AM FEB 1ST 2ND 3RD 4TH 5TH
     Dates: start: 20120201, end: 20120205

REACTIONS (4)
  - GAIT DISTURBANCE [None]
  - CONSTIPATION [None]
  - HALLUCINATION [None]
  - MUSCULAR WEAKNESS [None]
